FAERS Safety Report 25483810 (Version 1)
Quarter: 2025Q2

REPORT INFORMATION
  Report Type: Spontaneous
  Country: CH (occurrence: CH)
  Receive Date: 20250626
  Receipt Date: 20250626
  Transmission Date: 20250717
  Serious: Yes (Hospitalization, Other)
  Sender: DIFGEN PHARMACEUTICALS LLC
  Company Number: CH-Difgen-012047

PATIENT
  Age: 75 Year
  Sex: Female

DRUGS (4)
  1. MORPHINE [Suspect]
     Active Substance: MORPHINE
     Indication: Pain
     Route: 037
     Dates: start: 2012
  2. PREGABALIN [Concomitant]
     Active Substance: PREGABALIN
     Indication: Pain
     Route: 065
  3. CANNABIS SATIVA SEED OIL\HERBALS [Concomitant]
     Active Substance: CANNABIS SATIVA SEED OIL\HERBALS
     Indication: Pain
     Route: 065
  4. CLONIDINE [Suspect]
     Active Substance: CLONIDINE
     Indication: Pain
     Route: 037
     Dates: start: 2012

REACTIONS (5)
  - Catheter site granuloma [Recovering/Resolving]
  - Disease recurrence [Recovering/Resolving]
  - Myelomalacia [Recovering/Resolving]
  - Condition aggravated [Recovering/Resolving]
  - Therapy non-responder [Recovering/Resolving]

NARRATIVE: CASE EVENT DATE: 20180401
